FAERS Safety Report 16172991 (Version 4)
Quarter: 2019Q2

REPORT INFORMATION
  Report Type: Spontaneous
  Country: US (occurrence: US)
  Receive Date: 20190409
  Receipt Date: 20190611
  Transmission Date: 20190711
  Serious: No
  Sender: FDA-Public Use
  Company Number: US-PFIZER INC-2019149479

PATIENT
  Age: 85 Year
  Sex: Female

DRUGS (1)
  1. BOSULIF [Suspect]
     Active Substance: BOSUTINIB MONOHYDRATE
     Indication: CHRONIC MYELOID LEUKAEMIA
     Dosage: 400 MG, DAILY (4 TABLETS)
     Route: 048
     Dates: start: 20190120

REACTIONS (4)
  - Diarrhoea [Recovered/Resolved]
  - Pruritus [Unknown]
  - Urticaria [Unknown]
  - Rash [Unknown]
